FAERS Safety Report 10048893 (Version 1)
Quarter: 2014Q1

REPORT INFORMATION
  Report Type: Spontaneous
  Country: US (occurrence: US)
  Receive Date: 20140331
  Receipt Date: 20140331
  Transmission Date: 20141002
  Serious: No
  Sender: FDA-Public Use
  Company Number: US-PFIZER INC-2014088004

PATIENT
  Age: 42 Year
  Sex: Male

DRUGS (8)
  1. NEURONTIN [Suspect]
     Dosage: UNK
  2. LISINOPRIL [Suspect]
     Dosage: UNK
  3. COUMADINE [Suspect]
     Dosage: UNK
  4. CODEINE [Suspect]
     Dosage: UNK
  5. PRAVASTATIN [Suspect]
     Dosage: UNK
  6. NTG [Suspect]
     Dosage: UNK
  7. ZANTAC [Suspect]
     Dosage: UNK
  8. TRAZODONE [Suspect]
     Dosage: UNK

REACTIONS (1)
  - Drug hypersensitivity [Unknown]
